FAERS Safety Report 7288892-2 (Version None)
Quarter: 2011Q1

REPORT INFORMATION
  Report Type: 
  Country: None (occurrence: None)
  Receive Date: 20110211
  Receipt Date: 20110202
  Transmission Date: 20110831
  Serious: Yes (Hospitalization)
  Sender: FDA-Public Use
  Company Number: GB-PFIZER INC-2011022796

PATIENT
  Age: 36 Year
  Sex: Female

DRUGS (8)
  1. DEXAMETHASONE [Concomitant]
  2. INDOMETHACIN [Suspect]
  3. DIAZEPAM [Concomitant]
  4. PROPRANOLOL [Concomitant]
  5. SUMATRIPTAN [Concomitant]
  6. GABAPENTIN [Suspect]
     Dosage: UNK
  7. DICLOFENAC [Concomitant]
     Indication: MIGRAINE
  8. TRAMADOL [Concomitant]
     Indication: MIGRAINE

REACTIONS (3)
  - DYSPRAXIA [None]
  - CONFUSIONAL STATE [None]
  - SENSORY LOSS [None]
